FAERS Safety Report 4557007-3 (Version None)
Quarter: 2005Q1

REPORT INFORMATION
  Report Type: 
  Country: None (occurrence: None)
  Receive Date: 20050118
  Receipt Date: 20050104
  Transmission Date: 20050727
  Serious: Yes (Other)
  Sender: FDA-Public Use
  Company Number: 2005006430

PATIENT
  Sex: Male

DRUGS (4)
  1. ZOLOFT [Suspect]
     Indication: ILL-DEFINED DISORDER
     Dosage: 50 MG (50 MG, 1 IN 1 D), ORAL
     Route: 048
     Dates: start: 20041214, end: 20050103
  2. DOXEPIN HCL [Suspect]
     Indication: ILL-DEFINED DISORDER
     Dates: end: 20041227
  3. METHADONE (METHADONE) [Suspect]
     Indication: ILL-DEFINED DISORDER
  4. TRIMIPRAMINE MALEATE [Suspect]
     Indication: ILL-DEFINED DISORDER
     Dates: start: 20041227, end: 20050103

REACTIONS (2)
  - DRUG INTERACTION [None]
  - SEROTONIN SYNDROME [None]
